FAERS Safety Report 10526877 (Version 1)
Quarter: 2014Q4

REPORT INFORMATION
  Report Type: Spontaneous
  Country: US (occurrence: None)
  Receive Date: 20141017
  Receipt Date: 20141017
  Transmission Date: 20150528
  Serious: Yes (Hospitalization, Other)
  Sender: FDA-Public Use
  Company Number: None

PATIENT
  Age: 61 Year
  Sex: Female

DRUGS (1)
  1. PHENYTOIN. [Suspect]
     Active Substance: PHENYTOIN
     Dosage: 100 MG PO 5XD
     Route: 048
     Dates: end: 20130108

REACTIONS (1)
  - Toxicity to various agents [None]

NARRATIVE: CASE EVENT DATE: 20140108
